FAERS Safety Report 20981303 (Version 1)
Quarter: 2022Q2

REPORT INFORMATION
  Report Type: Spontaneous
  Country: US (occurrence: US)
  Receive Date: 20220620
  Receipt Date: 20220620
  Transmission Date: 20220720
  Serious: No
  Sender: FDA-Public Use
  Company Number: US-ASTELLAS-2021US024123

PATIENT
  Sex: Male

DRUGS (2)
  1. SOLIFENACIN [Suspect]
     Active Substance: SOLIFENACIN
     Indication: Bladder spasm
     Route: 065
  2. SOLIFENACIN [Suspect]
     Active Substance: SOLIFENACIN
     Indication: Urinary incontinence

REACTIONS (1)
  - Product use in unapproved indication [Unknown]
